FAERS Safety Report 7954240-5 (Version None)
Quarter: 2011Q4

REPORT INFORMATION
  Report Type: 
  Country: None (occurrence: None)
  Receive Date: 20111202
  Receipt Date: 20111123
  Transmission Date: 20120403
  Serious: Yes (Disabling, Other)
  Sender: FDA-Public Use
  Company Number: US-US-EMD SERONO, INC.-7098162

PATIENT
  Sex: Female

DRUGS (3)
  1. REBIF [Suspect]
     Route: 058
     Dates: start: 20111108
  2. IBUPROFEN [Concomitant]
     Indication: PREMEDICATION
  3. REBIF [Suspect]
     Indication: PRODUCT USED FOR UNKNOWN INDICATION
     Route: 058
     Dates: end: 20101201

REACTIONS (5)
  - BLINDNESS [None]
  - CONJUNCTIVAL ULCER [None]
  - INJECTION SITE HAEMATOMA [None]
  - INCORRECT DOSE ADMINISTERED [None]
  - COGNITIVE DISORDER [None]
